FAERS Safety Report 19999213 (Version 1)
Quarter: 2021Q4

REPORT INFORMATION
  Report Type: Spontaneous
  Country: US (occurrence: US)
  Receive Date: 20211027
  Receipt Date: 20211027
  Transmission Date: 20220303
  Serious: Yes (Hospitalization, Other)
  Sender: FDA-Public Use
  Company Number: US-SUN PHARMACEUTICAL INDUSTRIES LTD-2021R1-315363

PATIENT
  Age: 18 Year
  Sex: Male

DRUGS (3)
  1. VALPROIC ACID [Suspect]
     Active Substance: VALPROIC ACID
     Indication: Bipolar disorder
     Dosage: UNK
     Route: 065
  2. CLONAZEPAM [Concomitant]
     Active Substance: CLONAZEPAM
     Indication: Bipolar disorder
     Route: 065
  3. QUETIAPINE [Concomitant]
     Active Substance: QUETIAPINE
     Indication: Bipolar disorder
     Route: 065

REACTIONS (10)
  - Overdose [Unknown]
  - Brain oedema [Unknown]
  - Hyperammonaemia [Unknown]
  - Suicide attempt [Unknown]
  - Hypokalaemia [Unknown]
  - Hyperchloraemia [Unknown]
  - Hyperglycaemia [Unknown]
  - Mental impairment [Unknown]
  - Drug level increased [Unknown]
  - Coma [Unknown]
